FAERS Safety Report 18502382 (Version 1)
Quarter: 2020Q4

REPORT INFORMATION
  Report Type: Spontaneous
  Country: CA (occurrence: CA)
  Receive Date: 20201113
  Receipt Date: 20201113
  Transmission Date: 20210114
  Serious: Yes (Hospitalization)
  Sender: FDA-Public Use
  Company Number: CA-TAKEDA-2020TUS048473

PATIENT
  Age: 5 Year
  Sex: Female
  Weight: 32 kg

DRUGS (2)
  1. GAMMAGARD S/D [Suspect]
     Active Substance: HUMAN IMMUNOGLOBULIN G
     Indication: KAWASAKI^S DISEASE
     Dosage: 2 GRAM PER KILOGRAM (65 G DISPENSED)
     Route: 042
     Dates: start: 20201021, end: 20201021
  2. GAMMAGARD S/D [Suspect]
     Active Substance: HUMAN IMMUNOGLOBULIN G
     Indication: KAWASAKI^S DISEASE
     Dosage: 2 GRAM PER KILOGRAM (65 G DISPENSED)
     Route: 042
     Dates: start: 20201021, end: 20201021

REACTIONS (3)
  - Infusion related reaction [Unknown]
  - Chills [Recovered/Resolved]
  - Pruritus [Recovered/Resolved]
